FAERS Safety Report 24007471 (Version 2)
Quarter: 2024Q3

REPORT INFORMATION
  Report Type: Spontaneous
  Country: FR (occurrence: FR)
  Receive Date: 20240625
  Receipt Date: 20240710
  Transmission Date: 20241017
  Serious: Yes (Other)
  Sender: SANOFI AVENTIS
  Company Number: FR-CHEPLA-2024007713

PATIENT
  Sex: Male

DRUGS (19)
  1. PREDNISONE [Suspect]
     Active Substance: PREDNISONE
     Indication: Maternal exposure during pregnancy
     Dosage: 5 MG, QD
     Route: 064
  2. PREDNISONE [Suspect]
     Active Substance: PREDNISONE
     Dosage: 10 MG, QD (AT 6 WEEKS GESTATION)
     Route: 064
  3. FUROSEMIDE [Suspect]
     Active Substance: FUROSEMIDE
     Indication: Maternal exposure during pregnancy
     Dosage: UNK
     Route: 064
  4. RAMIPRIL [Suspect]
     Active Substance: RAMIPRIL
     Indication: Maternal exposure during pregnancy
     Dosage: 2.5 MG, QD
     Route: 064
  5. ENOXAPARIN SODIUM [Suspect]
     Active Substance: ENOXAPARIN SODIUM
     Indication: Maternal exposure during pregnancy
     Dosage: 4000 IU, QD
     Route: 064
  6. ASPIRIN [Suspect]
     Active Substance: ASPIRIN
     Indication: Maternal exposure during pregnancy
     Dosage: 160 MG, QD
     Route: 064
  7. ENTECAVIR [Suspect]
     Active Substance: ENTECAVIR
     Indication: Maternal exposure during pregnancy
     Dosage: 1 MG, QD
     Route: 064
  8. URSODIOL [Suspect]
     Active Substance: URSODIOL
     Indication: Maternal exposure during pregnancy
     Dosage: 500 MG, QD
     Route: 064
  9. URSODIOL [Suspect]
     Active Substance: URSODIOL
     Dosage: 10 MG/KG, QD
     Route: 064
  10. TACROLIMUS [Suspect]
     Active Substance: TACROLIMUS
     Indication: Maternal exposure during pregnancy
     Dosage: 9 MG, QD
  11. TACROLIMUS [Suspect]
     Active Substance: TACROLIMUS
     Dosage: 6 MG, QD
     Route: 064
  12. TACROLIMUS [Suspect]
     Active Substance: TACROLIMUS
     Dosage: 4 MG/KG, QD (TACROLEMIA TARGET 5-8 NG/ML),
     Route: 064
  13. TINZAPARIN [Suspect]
     Active Substance: TINZAPARIN
     Indication: Maternal exposure during pregnancy
     Dosage: UNK
     Route: 064
  14. NICARDIPINE [Suspect]
     Active Substance: NICARDIPINE
     Indication: Maternal exposure during pregnancy
     Dosage: UNK
     Route: 064
  15. IRON [Suspect]
     Active Substance: IRON
     Indication: Maternal exposure during pregnancy
     Dosage: UNK
     Route: 064
  16. DARBEPOETIN ALFA [Suspect]
     Active Substance: DARBEPOETIN ALFA
     Indication: Maternal exposure during pregnancy
     Dosage: 30 UG, QW
     Route: 064
  17. SODIUM BICARBONATE [Suspect]
     Active Substance: SODIUM BICARBONATE
     Indication: Maternal exposure during pregnancy
     Dosage: UNK
     Route: 064
  18. CHOLECALCIFEROL [Suspect]
     Active Substance: CHOLECALCIFEROL
     Indication: Maternal exposure during pregnancy
     Dosage: UNK
     Route: 064
  19. LABETALOL [Suspect]
     Active Substance: LABETALOL\LABETALOL HYDROCHLORIDE
     Indication: Maternal exposure during pregnancy
     Dosage: UNK
     Route: 064

REACTIONS (3)
  - Foetal arrhythmia [Recovered/Resolved]
  - Foetal growth restriction [Recovered/Resolved]
  - Foetal exposure during pregnancy [Recovered/Resolved]
